FAERS Safety Report 23149564 (Version 1)
Quarter: 2023Q4

REPORT INFORMATION
  Report Type: Spontaneous
  Country: US (occurrence: None)
  Receive Date: 20231104
  Receipt Date: 20231104
  Transmission Date: 20240110
  Serious: Yes (Life-Threatening, Disabling, Other)
  Sender: FDA-Public Use
  Company Number: None

PATIENT
  Age: 70 Year
  Sex: Female
  Weight: 67.5 kg

DRUGS (4)
  1. ENTRESTO [Suspect]
     Active Substance: SACUBITRIL\VALSARTAN
     Indication: Left ventricular failure
     Dosage: FREQUENCY : TWICE A DAY;?
     Route: 048
     Dates: start: 20210428, end: 20210504
  2. spironaldactone  25 mg 1/2 tab [Concomitant]
     Dates: start: 20220822
  3. METOPROLOL [Concomitant]
     Active Substance: METOPROLOL
     Dates: start: 20220822
  4. FARXIGA [Concomitant]
     Active Substance: DAPAGLIFLOZIN PROPANEDIOL
     Dates: start: 20220822

REACTIONS (11)
  - Pulse pressure decreased [None]
  - Hypotension [None]
  - Dysstasia [None]
  - Cardiac resynchronisation therapy [None]
  - Drug tolerance [None]
  - Asthenia [None]
  - Confusional state [None]
  - Fatigue [None]
  - Therapy interrupted [None]
  - Treatment failure [None]
  - Device computer issue [None]

NARRATIVE: CASE EVENT DATE: 20220822
